FAERS Safety Report 19147792 (Version 2)
Quarter: 2021Q2

REPORT INFORMATION
  Report Type: Spontaneous
  Country: JP (occurrence: JP)
  Receive Date: 20210416
  Receipt Date: 20210513
  Transmission Date: 20210717
  Serious: Yes (Other)
  Sender: FDA-Public Use
  Company Number: JP-ROCHE-2812186

PATIENT
  Age: 46 Year
  Sex: Male
  Weight: 54 kg

DRUGS (5)
  1. TECENTRIQ [Suspect]
     Active Substance: ATEZOLIZUMAB
     Indication: HEPATOCELLULAR CARCINOMA
     Route: 041
     Dates: start: 20210315
  2. AVASTIN [Suspect]
     Active Substance: BEVACIZUMAB
     Indication: HEPATOCELLULAR CARCINOMA
     Route: 041
     Dates: start: 20210315
  3. AMARYL [Concomitant]
     Active Substance: GLIMEPIRIDE
  4. NEXAVAR [Concomitant]
     Active Substance: SORAFENIB
     Indication: HEPATOCELLULAR CARCINOMA
     Dates: start: 20210205, end: 20210219
  5. GLACTIV [Concomitant]
     Active Substance: SITAGLIPTIN

REACTIONS (1)
  - Bone sequestrum [Recovered/Resolved]

NARRATIVE: CASE EVENT DATE: 20210317
